FAERS Safety Report 10570116 (Version 1)
Quarter: 2014Q4

REPORT INFORMATION
  Report Type: Spontaneous
  Country: US (occurrence: None)
  Receive Date: 20141106
  Receipt Date: 20141106
  Transmission Date: 20150529
  Serious: No
  Sender: FDA-Public Use
  Company Number: None

PATIENT
  Age: 56 Year
  Sex: Female
  Weight: 55.34 kg

DRUGS (4)
  1. SYNTHROID [Concomitant]
     Active Substance: LEVOTHYROXINE SODIUM
  2. VITAMIN D [Concomitant]
     Active Substance: CHOLECALCIFEROL
  3. LEVOFLOXACIN. [Suspect]
     Active Substance: LEVOFLOXACIN
     Indication: SINUSITIS
     Dosage: 1 PER DAY -7 DAYS ONCE PER DAY ORAL
     Route: 048
     Dates: start: 20140621, end: 20140625
  4. PSEUDOFED [Concomitant]

REACTIONS (8)
  - Arthropathy [None]
  - Local swelling [None]
  - Tendonitis [None]
  - Nausea [None]
  - Diarrhoea [None]
  - Dizziness [None]
  - Headache [None]
  - Tendon disorder [None]

NARRATIVE: CASE EVENT DATE: 20140621
